FAERS Safety Report 16869441 (Version 1)
Quarter: 2019Q3

REPORT INFORMATION
  Report Type: Spontaneous
  Country: CA (occurrence: CA)
  Receive Date: 20190930
  Receipt Date: 20190930
  Transmission Date: 20191005
  Serious: Yes (Other)
  Sender: FDA-Public Use
  Company Number: CA-ABBVIE-19K-028-2941319-00

PATIENT
  Age: 63 Year
  Sex: Male

DRUGS (1)
  1. DUODOPA [Suspect]
     Active Substance: CARBIDOPA\LEVODOPA
     Indication: PARKINSON^S DISEASE
     Route: 050
     Dates: start: 2017

REACTIONS (6)
  - Freezing phenomenon [Unknown]
  - Deep brain stimulation [Unknown]
  - Balance disorder [Unknown]
  - Somnolence [Unknown]
  - Gait disturbance [Unknown]
  - Dyskinesia [Recovered/Resolved]
